FAERS Safety Report 7213096-9 (Version None)
Quarter: 2010Q4

REPORT INFORMATION
  Report Type: 
  Country: None (occurrence: None)
  Receive Date: 20101227
  Receipt Date: 20101213
  Transmission Date: 20110411
  Serious: Yes (Death)
  Sender: FDA-Public Use
  Company Number: 2010P1003282

PATIENT
  Sex: Female

DRUGS (1)
  1. FENTANYL [Suspect]

REACTIONS (1)
  - MALAISE [None]
